FAERS Safety Report 9090124 (Version 1)
Quarter: 2013Q1

REPORT INFORMATION
  Report Type: Report from Study
  Country: US (occurrence: US)
  Receive Date: 20130131
  Receipt Date: 20130131
  Transmission Date: 20140127
  Serious: No
  Sender: FDA-Public Use
  Company Number: US-ABBOTT-12P-163-0994777-00

PATIENT
  Sex: Male

DRUGS (2)
  1. HUMIRA [Suspect]
     Dates: start: 20120626, end: 201208
  2. HUMIRA [Suspect]
     Dates: start: 201208, end: 20120928

REACTIONS (1)
  - Drug ineffective [Not Recovered/Not Resolved]
